FAERS Safety Report 5560774-3 (Version None)
Quarter: 2007Q4

REPORT INFORMATION
  Report Type: 
  Country: None (occurrence: None)
  Receive Date: 20071215
  Receipt Date: 20071126
  Transmission Date: 20080405
  Serious: No
  Sender: FDA-Public Use
  Company Number: US-ABBOTT-07P-163-0426286-00

PATIENT
  Sex: Male
  Weight: 100 kg

DRUGS (10)
  1. HUMIRA [Suspect]
     Indication: CROHN'S DISEASE
     Route: 058
     Dates: start: 20071017, end: 20071101
  2. HUMIRA [Suspect]
     Route: 058
     Dates: start: 20071115
  3. HUMIRA [Suspect]
     Route: 058
     Dates: start: 20071115
  4. FOLIC ACID [Concomitant]
     Indication: DRUG USE FOR UNKNOWN INDICATION
     Route: 048
  5. LEVOTHYROXINE SODIUM [Concomitant]
     Indication: HYPOTHYROIDISM
     Route: 048
  6. METOPROLOL SUCCINATE [Concomitant]
     Indication: HYPERTENSION
     Route: 048
  7. VALSARTAN [Concomitant]
     Indication: HYPERTENSION
     Route: 048
  8. ESOMEPRAZOLE MAGNESIUM [Concomitant]
     Indication: GASTROOESOPHAGEAL REFLUX DISEASE
     Route: 048
  9. BUDESONIDE [Concomitant]
     Indication: CROHN'S DISEASE
     Route: 048
  10. BALSALAZIDE DISODIUM [Concomitant]
     Indication: CROHN'S DISEASE
     Route: 048

REACTIONS (5)
  - BLOOD PRESSURE INCREASED [None]
  - COUGH [None]
  - INFLUENZA LIKE ILLNESS [None]
  - RESPIRATORY TRACT CONGESTION [None]
  - RHINORRHOEA [None]
